FAERS Safety Report 15485629 (Version 3)
Quarter: 2018Q4

REPORT INFORMATION
  Report Type: Spontaneous
  Country: FR (occurrence: FR)
  Receive Date: 20181010
  Receipt Date: 20181127
  Transmission Date: 20190205
  Serious: Yes (Hospitalization, Other)
  Sender: FDA-Public Use
  Company Number: PHHY2018FR120419

PATIENT
  Age: 32 Year
  Sex: Female
  Weight: 47 kg

DRUGS (11)
  1. NAABAK (SPAGLUMIC ACID) [Suspect]
     Active Substance: SPAGLUMIC ACID
     Indication: CONJUNCTIVITIS
     Dosage: UNK
     Route: 047
  2. DUPILUMAB [Suspect]
     Active Substance: DUPILUMAB
     Indication: DERMATITIS ATOPIC
     Dosage: 1 ?G/L, CYCLIC
     Route: 058
     Dates: start: 20171120, end: 20180409
  3. IBUPROFEN. [Suspect]
     Active Substance: IBUPROFEN
     Indication: URINARY TRACT INFECTION
     Dosage: UNK
     Route: 048
  4. MONAZOL [Concomitant]
     Active Substance: SERTACONAZOLE NITRATE
     Indication: CANDIDA INFECTION
     Dosage: 1 ?G/L, UNK
     Route: 067
  5. CETIRIZINE HYDROCHLORIDE. [Suspect]
     Active Substance: CETIRIZINE HYDROCHLORIDE
     Indication: DERMATITIS ATOPIC
     Dosage: 1 ?G/L, QD
     Route: 048
     Dates: start: 2017
  6. ZYRTEC [Suspect]
     Active Substance: CETIRIZINE HYDROCHLORIDE
     Indication: DERMATITIS ATOPIC
     Dosage: 1 ?G/L, QD
     Route: 048
     Dates: start: 2017
  7. MONURIL [Concomitant]
     Active Substance: FOSFOMYCIN TROMETHAMINE
     Indication: URINARY TRACT INFECTION
     Dosage: 1 ?G/L, UNK
     Route: 048
  8. FURADANTINE [Concomitant]
     Active Substance: NITROFURANTOIN
     Indication: URINARY TRACT INFECTION
     Dosage: 3 UNK, QD
     Route: 048
     Dates: start: 20180517, end: 20180522
  9. COMPLEMENT (NAPROXEN SODIUM) [Suspect]
     Active Substance: NAPROXEN SODIUM
     Indication: PRODUCT USED FOR UNKNOWN INDICATION
     Dosage: 2 ?G/L, QD
     Route: 048
     Dates: start: 20180516
  10. VALACICLOVIR [Suspect]
     Active Substance: VALACYCLOVIR HYDROCHLORIDE
     Indication: HERPES SIMPLEX
     Dosage: 500 MG, QD
     Route: 048
     Dates: start: 2017
  11. IBUPROFENE ZYDUS [Suspect]
     Active Substance: IBUPROFEN
     Indication: URINARY TRACT INFECTION
     Dosage: UNK
     Route: 048

REACTIONS (3)
  - Maternal exposure before pregnancy [Unknown]
  - Abortion spontaneous [Recovered/Resolved]
  - Exposure during pregnancy [Unknown]

NARRATIVE: CASE EVENT DATE: 20171120
